FAERS Safety Report 7469261-9 (Version None)
Quarter: 2011Q2

REPORT INFORMATION
  Report Type: 
  Country: None (occurrence: None)
  Receive Date: 20110429
  Receipt Date: 20110414
  Transmission Date: 20111010
  Serious: Yes (Other)
  Sender: FDA-Public Use
  Company Number: US-2011-10242

PATIENT
  Age: 1 Year
  Sex: Male

DRUGS (5)
  1. CYCLOSPORINE [Concomitant]
  2. CYCLOPHOSPHAMIDE [Concomitant]
  3. MYCOPHENOLATE MOFETIL [Concomitant]
  4. BUSULFEX [Suspect]
  5. CAMPATH [Concomitant]

REACTIONS (4)
  - PNEUMOTHORAX [None]
  - CARDIAC TAMPONADE [None]
  - RESPIRATORY FAILURE [None]
  - PNEUMONIA RESPIRATORY SYNCYTIAL VIRAL [None]
